FAERS Safety Report 25408911 (Version 2)
Quarter: 2025Q4

REPORT INFORMATION
  Report Type: Report from Study
  Country: JP (occurrence: JP)
  Receive Date: 20250607
  Receipt Date: 20251020
  Transmission Date: 20260118
  Serious: Yes (Death, Hospitalization)
  Sender: ROCHE
  Company Number: JP-ROCHE-10000303758

PATIENT

DRUGS (2)
  1. RITUXIMAB [Suspect]
     Active Substance: RITUXIMAB
     Indication: Granulomatosis with polyangiitis
     Route: 042
  2. RITUXIMAB [Suspect]
     Active Substance: RITUXIMAB
     Indication: Microscopic polyangiitis

REACTIONS (7)
  - Pneumonia [Fatal]
  - Deep vein thrombosis [Unknown]
  - Infusion related reaction [Unknown]
  - Cholangitis [Unknown]
  - Lung abscess [Unknown]
  - Pulmonary tuberculosis [Unknown]
  - Pneumocystis jirovecii pneumonia [Fatal]
